FAERS Safety Report 5105635-9 (Version None)
Quarter: 2006Q3

REPORT INFORMATION
  Report Type: 
  Country: None (occurrence: None)
  Receive Date: 20060915
  Receipt Date: 20060825
  Transmission Date: 20061208
  Serious: Yes (Other)
  Sender: FDA-Public Use
  Company Number: PHBS2006JP13081

PATIENT

DRUGS (1)
  1. NEORAL [Suspect]
     Indication: MYASTHENIA GRAVIS
     Route: 048

REACTIONS (3)
  - ANGINA PECTORIS [None]
  - BACK PAIN [None]
  - DIARRHOEA [None]
